FAERS Safety Report 12328740 (Version 1)
Quarter: 2016Q2

REPORT INFORMATION
  Report Type: Spontaneous
  Country: US (occurrence: US)
  Receive Date: 20160503
  Receipt Date: 20160503
  Transmission Date: 20160815
  Serious: No
  Sender: FDA-Public Use
  Company Number: US-BEH-2015050427

PATIENT
  Age: 18 Year
  Sex: Male
  Weight: 72 kg

DRUGS (12)
  1. DIPHENHYDRAMINE. [Concomitant]
     Active Substance: DIPHENHYDRAMINE
  2. VITAMIN B12 [Concomitant]
     Active Substance: CYANOCOBALAMIN
  3. IBUPROFEN. [Concomitant]
     Active Substance: IBUPROFEN
  4. CELECOXIB. [Concomitant]
     Active Substance: CELECOXIB
  5. TYLENOL [Concomitant]
     Active Substance: ACETAMINOPHEN
  6. PROBIOTIC [Concomitant]
     Active Substance: PROBIOTICS NOS
  7. HIZENTRA [Suspect]
     Active Substance: HUMAN IMMUNOGLOBULIN G
     Indication: IMMUNODEFICIENCY COMMON VARIABLE
     Dosage: 3 SITES
     Route: 058
     Dates: start: 20131126
  8. GABAPENTIN. [Concomitant]
     Active Substance: GABAPENTIN
  9. EPIPEN [Concomitant]
     Active Substance: EPINEPHRINE
  10. AMOXICILLIN. [Concomitant]
     Active Substance: AMOXICILLIN
  11. MAGNESIUM OXIDE. [Concomitant]
     Active Substance: MAGNESIUM OXIDE
  12. LMX [Concomitant]
     Active Substance: LIDOCAINE

REACTIONS (5)
  - Infusion site extravasation [Recovering/Resolving]
  - Fatigue [Recovering/Resolving]
  - Sluggishness [Recovering/Resolving]
  - Infusion site reaction [Recovering/Resolving]
  - Infusion site haemorrhage [Recovering/Resolving]

NARRATIVE: CASE EVENT DATE: 20150412
